FAERS Safety Report 22982101 (Version 3)
Quarter: 2024Q4

REPORT INFORMATION
  Report Type: Spontaneous
  Country: US (occurrence: US)
  Receive Date: 20230926
  Receipt Date: 20241018
  Transmission Date: 20250115
  Serious: No
  Sender: CIPLA
  Company Number: US-CIPLA LTD.-2022US04414

PATIENT

DRUGS (8)
  1. BUPROPION [Suspect]
     Active Substance: BUPROPION
     Indication: Post-traumatic stress disorder
     Dosage: 150 MILLIGRAM, BID (2 X DAY)
     Route: 065
     Dates: start: 20220403, end: 202206
  2. BUPROPION [Suspect]
     Active Substance: BUPROPION
     Indication: Depression
  3. LAMOTRIGINE [Suspect]
     Active Substance: LAMOTRIGINE
     Indication: Antidepressant therapy
     Dosage: 2-3 TAB A DAY, 5-10 YEARS AGO
     Route: 065
  4. LAMOTRIGINE [Suspect]
     Active Substance: LAMOTRIGINE
     Indication: Fatigue
  5. ALERFIX [Concomitant]
     Indication: Seasonal allergy
     Dosage: 118 MILLIGRAM, QD (ONCE IN THE MORNING)
     Route: 065
     Dates: start: 2002
  6. CYCLOPAM [DICYCLOVERINE HYDROCHLORIDE;PARACETAMOL] [Concomitant]
     Indication: Oral herpes
     Dosage: 200 MILLIGRAM, QD (ONCE A DAY)
     Route: 065
     Dates: start: 2003
  7. CYCLOPAM [DICYCLOVERINE HYDROCHLORIDE;PARACETAMOL] [Concomitant]
     Indication: Ulcer
  8. NORFLOXACIN [Concomitant]
     Active Substance: NORFLOXACIN
     Indication: Bacterial infection
     Dosage: 50 MILLIGRAM, QD (ONCE A DAY)
     Route: 065
     Dates: start: 2017

REACTIONS (6)
  - Fine motor skill dysfunction [Recovered/Resolved]
  - Psychomotor hyperactivity [Recovered/Resolved]
  - Gait disturbance [Recovered/Resolved]
  - Sleep disorder [Recovered/Resolved]
  - Sleep deficit [Recovered/Resolved]
  - Weight decreased [Recovered/Resolved]

NARRATIVE: CASE EVENT DATE: 20220401
